FAERS Safety Report 5657285-3 (Version None)
Quarter: 2008Q1

REPORT INFORMATION
  Report Type: 
  Country: None (occurrence: None)
  Receive Date: 20080310
  Receipt Date: 20080229
  Transmission Date: 20080703
  Serious: Yes (Hospitalization, Disabling)
  Sender: FDA-Public Use
  Company Number: HK-PFIZER INC-2008016283

PATIENT
  Sex: Female
  Weight: 67 kg

DRUGS (1)
  1. BLINDED PREGABALIN (CI-1008) [Suspect]
     Indication: PROCEDURAL PAIN
     Route: 048

REACTIONS (3)
  - PYREXIA [None]
  - TACHYCARDIA [None]
  - URETERIC STENOSIS [None]
